FAERS Safety Report 11246686 (Version 1)
Quarter: 2015Q3

REPORT INFORMATION
  Report Type: Spontaneous
  Country: US (occurrence: US)
  Receive Date: 20150708
  Receipt Date: 20150708
  Transmission Date: 20151125
  Serious: Yes (Disabling)
  Sender: FDA-Public Use
  Company Number: US-HOSPIRA-2927631

PATIENT
  Age: 44 Year
  Sex: Female

DRUGS (19)
  1. METOCLOPRAMIDE. [Concomitant]
     Active Substance: METOCLOPRAMIDE
     Indication: ASPIRATION
     Route: 042
  2. METOCLOPRAMIDE. [Concomitant]
     Active Substance: METOCLOPRAMIDE
     Indication: PROPHYLAXIS
     Route: 042
  3. SEVOFLURANE. [Concomitant]
     Active Substance: SEVOFLURANE
     Indication: RESPIRATORY THERAPY
  4. SUCCINYLCHOLINE CHLORIDE. [Suspect]
     Active Substance: SUCCINYLCHOLINE CHLORIDE
     Indication: ENDOTRACHEAL INTUBATION
  5. DIPHENHYDRAMINE. [Concomitant]
     Active Substance: DIPHENHYDRAMINE
     Indication: PREMEDICATION
     Route: 042
  6. METOCLOPRAMIDE. [Concomitant]
     Active Substance: METOCLOPRAMIDE
     Indication: ANTIEMETIC SUPPORTIVE CARE
     Route: 042
  7. SUCCINYLCHOLINE CHLORIDE. [Suspect]
     Active Substance: SUCCINYLCHOLINE CHLORIDE
     Indication: INDUCTION OF ANAESTHESIA
  8. RINGER LACTATED [Concomitant]
     Indication: NAUSEA
     Route: 042
  9. CAFFEINE. [Concomitant]
     Active Substance: CAFFEINE
     Indication: HEADACHE
     Route: 042
  10. PROPOFOL. [Suspect]
     Active Substance: PROPOFOL
     Indication: INDUCTION OF ANAESTHESIA
  11. ONDANSETRON [Concomitant]
     Active Substance: ONDANSETRON
     Indication: PREMEDICATION
  12. OXYGEN. [Concomitant]
     Active Substance: OXYGEN
     Indication: RESPIRATORY THERAPY
  13. ALFENTANIL HYDROCHLORIDE. [Suspect]
     Active Substance: ALFENTANIL HYDROCHLORIDE
     Indication: ENDOTRACHEAL INTUBATION
  14. MIDAZOLAM [Concomitant]
     Active Substance: MIDAZOLAM\MIDAZOLAM HYDROCHLORIDE
     Indication: PREMEDICATION
     Route: 042
  15. ALFENTANIL HYDROCHLORIDE. [Suspect]
     Active Substance: ALFENTANIL HYDROCHLORIDE
     Indication: INDUCTION OF ANAESTHESIA
  16. KETOROLAC [Concomitant]
     Active Substance: KETOROLAC\KETOROLAC TROMETHAMINE
     Indication: HEADACHE
  17. PROPOFOL. [Suspect]
     Active Substance: PROPOFOL
     Indication: ENDOTRACHEAL INTUBATION
  18. SODIUM CITRATE. [Concomitant]
     Active Substance: SODIUM CITRATE
     Indication: PREMEDICATION
     Dosage: 30 CM^3
     Route: 048
  19. ONDANSETRON [Concomitant]
     Active Substance: ONDANSETRON
     Indication: NAUSEA
     Dosage: ADDITIONAL DOSE

REACTIONS (2)
  - Retinopathy haemorrhagic [Recovering/Resolving]
  - Blindness [Recovering/Resolving]
